FAERS Safety Report 8237148-X (Version None)
Quarter: 2012Q1

REPORT INFORMATION
  Report Type: 
  Country: None (occurrence: None)
  Receive Date: 20120327
  Receipt Date: 20120323
  Transmission Date: 20120608
  Serious: No
  Sender: FDA-Public Use
  Company Number: US-PFIZER INC-2012076177

PATIENT
  Sex: Male
  Weight: 95.238 kg

DRUGS (1)
  1. XANAX XR [Suspect]
     Indication: ANXIETY
     Dosage: 0.5 MG, AS NEEDED
     Route: 048
     Dates: start: 20040101

REACTIONS (3)
  - MALAISE [None]
  - THERAPEUTIC RESPONSE UNEXPECTED [None]
  - GASTRIC DISORDER [None]
